FAERS Safety Report 10085982 (Version 1)
Quarter: 2014Q2

REPORT INFORMATION
  Report Type: Spontaneous
  Country: GB (occurrence: None)
  Receive Date: 20140416
  Receipt Date: 20140416
  Transmission Date: 20141212
  Serious: Yes (Other)
  Sender: FDA-Public Use
  Company Number: NL01PV14.35717

PATIENT
  Age: 78 Year
  Sex: Male

DRUGS (5)
  1. TAMSULOSIN [Suspect]
     Indication: URINARY RETENTION
     Route: 048
     Dates: start: 20140303
  2. CLEXANE (ENOXAPARIN SODIUM) [Concomitant]
  3. DOCUSATE (DOCUSATE) [Concomitant]
  4. LAXIDO /06401201/ (MACROGOL, POTASSIUM CHLORIDE, SODIUM BICARBONATE, SODIUM CHLORIDE) [Concomitant]
  5. UNSPECIFIED HERBAL [Concomitant]

REACTIONS (2)
  - Lymphoedema [None]
  - Pruritus [None]
